FAERS Safety Report 9786579 (Version 2)
Quarter: 2013Q4

REPORT INFORMATION
  Report Type: Spontaneous
  Country: US (occurrence: US)
  Receive Date: 20131227
  Receipt Date: 20131227
  Transmission Date: 20140711
  Serious: Yes (Other)
  Sender: FDA-Public Use
  Company Number: CHPA2013US018272

PATIENT
  Age: 64 Year
  Sex: Female

DRUGS (2)
  1. CVS [Suspect]
     Indication: SMOKING CESSATION THERAPY
     Dosage: 14 MG, UNK
     Route: 062
  2. CVS [Suspect]
     Dosage: UNK
     Route: 062

REACTIONS (6)
  - Musculoskeletal discomfort [Not Recovered/Not Resolved]
  - Anxiety [Not Recovered/Not Resolved]
  - Headache [Recovered/Resolved]
  - Insomnia [Not Recovered/Not Resolved]
  - Vision blurred [Unknown]
  - Restlessness [Not Recovered/Not Resolved]
